FAERS Safety Report 9283363 (Version 1)
Quarter: 2013Q2

REPORT INFORMATION
  Report Type: Spontaneous
  Country: US (occurrence: US)
  Receive Date: 20130510
  Receipt Date: 20130510
  Transmission Date: 20140414
  Serious: No
  Sender: FDA-Public Use
  Company Number: US-GLAXOSMITHKLINE-A1000905A

PATIENT
  Age: 59 Year
  Sex: Female

DRUGS (4)
  1. TYKERB [Suspect]
     Indication: BREAST CANCER
     Dosage: 1250MG PER DAY
     Route: 048
     Dates: start: 201104, end: 20121111
  2. LOTREL [Concomitant]
  3. SYNTHROID [Concomitant]
  4. XELODA [Concomitant]

REACTIONS (5)
  - Swelling face [Recovering/Resolving]
  - Lip swelling [Unknown]
  - Swollen tongue [Unknown]
  - Swelling face [Unknown]
  - Blood potassium decreased [Unknown]
